FAERS Safety Report 6510944-2 (Version None)
Quarter: 2009Q4

REPORT INFORMATION
  Report Type: 
  Country: None (occurrence: None)
  Receive Date: 20091222
  Receipt Date: 20090206
  Transmission Date: 20100525
  Serious: No
  Sender: FDA-Public Use
  Company Number: US-ASTRAZENECA-2009UW03469

PATIENT
  Age: 78 Year
  Sex: Male
  Weight: 96.2 kg

DRUGS (10)
  1. CRESTOR [Suspect]
     Dosage: UNKNOWN
     Route: 048
     Dates: start: 20090201
  2. WARFARIN SODIUM [Concomitant]
  3. METOPROLOL TARTRATE [Concomitant]
  4. CREVACID [Concomitant]
  5. DIGOXIN [Concomitant]
  6. COREG [Concomitant]
  7. FLOMAX [Concomitant]
  8. ASPIRIN [Concomitant]
  9. KALO-CON [Concomitant]
  10. MULTI-VITAMINS [Concomitant]

REACTIONS (1)
  - MUSCLE SPASMS [None]
